FAERS Safety Report 5023281-2 (Version None)
Quarter: 2006Q2

REPORT INFORMATION
  Report Type: 
  Country: None (occurrence: None)
  Receive Date: 20060612
  Receipt Date: 20060531
  Transmission Date: 20061013
  Serious: Yes (Death, Hospitalization)
  Sender: FDA-Public Use
  Company Number: CH-JNJFOC-20060602166

PATIENT
  Age: 19 Year
  Sex: Male

DRUGS (4)
  1. REMICADE [Suspect]
     Indication: INFLAMMATORY BOWEL DISEASE
     Route: 042
  2. ASACOL [Suspect]
     Indication: INFLAMMATORY BOWEL DISEASE
  3. AZATHIOPRINE [Suspect]
     Indication: INFLAMMATORY BOWEL DISEASE
  4. ITRACONAZOLE [Concomitant]

REACTIONS (4)
  - PNEUMONIA [None]
  - RESPIRATORY FAILURE [None]
  - SEPSIS [None]
  - TRICHOSPORON INFECTION [None]
